FAERS Safety Report 23362579 (Version 1)
Quarter: 2024Q1

REPORT INFORMATION
  Report Type: Spontaneous
  Country: US (occurrence: None)
  Receive Date: 20240103
  Receipt Date: 20240103
  Transmission Date: 20240409
  Serious: Yes (Death)
  Sender: FDA-Public Use
  Company Number: None

PATIENT
  Age: 82 Year
  Sex: Male

DRUGS (5)
  1. SEROQUEL [Suspect]
     Active Substance: QUETIAPINE FUMARATE
     Indication: Product used for unknown indication
     Dosage: FREQUENCY : AT BEDTIME;?
  2. LEXAPRO [Concomitant]
     Active Substance: ESCITALOPRAM OXALATE
  3. UNSPECIFIED INGREDIENT [Concomitant]
     Active Substance: UNSPECIFIED INGREDIENT
  4. UNSPECIFIED INGREDIENT [Concomitant]
     Active Substance: UNSPECIFIED INGREDIENT
  5. UNSPECIFIED INGREDIENT [Concomitant]
     Active Substance: UNSPECIFIED INGREDIENT

REACTIONS (14)
  - Chest pain [None]
  - Electrocardiogram abnormal [None]
  - Stent placement [None]
  - Urinary tract infection [None]
  - Hallucination [None]
  - Insomnia [None]
  - Drug ineffective [None]
  - Abnormal behaviour [None]
  - Bedridden [None]
  - Cognitive disorder [None]
  - Delirium [None]
  - Paradoxical drug reaction [None]
  - Product prescribing issue [None]
  - Psychotic disorder [None]

NARRATIVE: CASE EVENT DATE: 20231215
